FAERS Safety Report 13108207 (Version 6)
Quarter: 2018Q1

REPORT INFORMATION
  Report Type: Spontaneous
  Country: JP (occurrence: JP)
  Receive Date: 20170112
  Receipt Date: 20180302
  Transmission Date: 20180508
  Serious: Yes (Other)
  Sender: FDA-Public Use
  Company Number: JP-ASTRAZENECA-2017SE02796

PATIENT
  Age: 73 Year
  Sex: Male
  Weight: 47 kg

DRUGS (14)
  1. SEROQUEL [Suspect]
     Active Substance: QUETIAPINE FUMARATE
     Indication: PRODUCT USED FOR UNKNOWN INDICATION
     Dosage: 150MG
     Route: 048
     Dates: start: 20160815, end: 20160827
  2. HANP [Suspect]
     Active Substance: CARPERITIDE
     Indication: CARDIAC FAILURE
     Dosage: UNKNOWN
     Route: 041
     Dates: start: 2016, end: 2016
  3. DOBUTAMINE [Suspect]
     Active Substance: DOBUTAMINE\DOBUTAMINE HYDROCHLORIDE
     Indication: CARDIAC FAILURE
     Dosage: 2G
     Route: 041
     Dates: start: 20160708, end: 20160721
  4. AZOSEMIDE [Concomitant]
     Active Substance: AZOSEMIDE
     Route: 065
  5. SEROQUEL [Suspect]
     Active Substance: QUETIAPINE FUMARATE
     Indication: PRODUCT USED FOR UNKNOWN INDICATION
     Dosage: 50MG
     Route: 048
     Dates: start: 20160810, end: 20160814
  6. MEROPEN [Suspect]
     Active Substance: MEROPENEM
     Indication: PNEUMONIA
     Dosage: 2G UNKNOWN
     Route: 041
     Dates: start: 20160830, end: 20160904
  7. CEFEPIME HYDROCHLORIDE. [Suspect]
     Active Substance: CEFEPIME HYDROCHLORIDE
     Indication: INFECTIOUS PLEURAL EFFUSION
     Dosage: 4G
     Route: 041
     Dates: start: 20160729, end: 20160817
  8. LASIX [Suspect]
     Active Substance: FUROSEMIDE
     Indication: CARDIAC FAILURE
     Route: 042
     Dates: start: 2016, end: 2016
  9. LASIX [Suspect]
     Active Substance: FUROSEMIDE
     Indication: CARDIAC FAILURE
     Route: 042
     Dates: start: 20160724, end: 20160826
  10. MINOMYCIN [Suspect]
     Active Substance: MINOCYCLINE HYDROCHLORIDE
     Indication: PRODUCT USED FOR UNKNOWN INDICATION
     Dosage: 200MG
     Route: 041
     Dates: start: 20160818, end: 20160902
  11. MEROPEN [Suspect]
     Active Substance: MEROPENEM
     Indication: PNEUMONIA
     Dosage: 0.25G UNKNOWN
     Route: 041
     Dates: start: 201607, end: 2016
  12. DOBUTAMINE [Suspect]
     Active Substance: DOBUTAMINE\DOBUTAMINE HYDROCHLORIDE
     Indication: CARDIAC FAILURE
     Dosage: UNKNOWN
     Route: 041
     Dates: start: 2016, end: 2016
  13. HANP [Suspect]
     Active Substance: CARPERITIDE
     Indication: CARDIAC FAILURE
     Dosage: 0.02G
     Route: 041
     Dates: start: 20160820, end: 20160917
  14. BENIDIPINE HYDROCHLORIDE [Concomitant]
     Active Substance: BENIDIPINE HYDROCHLORIDE
     Route: 065

REACTIONS (7)
  - Infectious pleural effusion [Recovered/Resolved]
  - Off label use [Unknown]
  - Anuria [Recovered/Resolved]
  - Acute kidney injury [Recovered/Resolved]
  - Renal tubular necrosis [Recovered/Resolved]
  - Pneumonia aspiration [Recovered/Resolved]
  - Delirium [Recovered/Resolved]

NARRATIVE: CASE EVENT DATE: 20160728
